FAERS Safety Report 10593837 (Version 1)
Quarter: 2014Q4

REPORT INFORMATION
  Report Type: Report from Study
  Country: US (occurrence: US)
  Receive Date: 20141119
  Receipt Date: 20141119
  Transmission Date: 20150529
  Serious: No
  Sender: FDA-Public Use
  Company Number: US-GLAXOSMITHKLINE-US2014GSK023672

PATIENT

DRUGS (1)
  1. RETIGABINE [Suspect]
     Active Substance: EZOGABINE
     Indication: EPILEPSY

REACTIONS (1)
  - Neoplasm of orbit [Unknown]
